FAERS Safety Report 6127228-7 (Version None)
Quarter: 2009Q1

REPORT INFORMATION
  Report Type: 
  Country: None (occurrence: None)
  Receive Date: 20090320
  Receipt Date: 20090313
  Transmission Date: 20090719
  Serious: Yes (Other)
  Sender: FDA-Public Use
  Company Number: GB-ABBOTT-09P-167-0563265-00

PATIENT
  Sex: Female

DRUGS (1)
  1. ERYTHROCIN [Suspect]
     Indication: TONSILLITIS
     Route: 048
     Dates: start: 20090223

REACTIONS (8)
  - ABDOMINAL DISCOMFORT [None]
  - ANGINA PECTORIS [None]
  - DYSPEPSIA [None]
  - NAUSEA [None]
  - PALPITATIONS [None]
  - RENAL PAIN [None]
  - URINARY INCONTINENCE [None]
  - VOMITING [None]
